FAERS Safety Report 7467385-3 (Version None)
Quarter: 2011Q2

REPORT INFORMATION
  Report Type: 
  Country: None (occurrence: None)
  Receive Date: 20110509
  Receipt Date: 20091228
  Transmission Date: 20111010
  Serious: Yes (Death, Hospitalization, Other)
  Sender: FDA-Public Use
  Company Number: US-BAYER-201013023NA

PATIENT
  Age: 78 Year
  Sex: Male
  Weight: 82.54 kg

DRUGS (25)
  1. COUMADIN [Concomitant]
     Dosage: 2.5 MG, 5 DAYS/WEEK
     Route: 048
  2. ACETYLSALICYLIC ACID SRT [Concomitant]
     Dosage: 81 MG, QD
  3. FUROSEMIDE [Concomitant]
  4. TRASYLOL [Suspect]
     Indication: ENDARTERECTOMY
  5. ACETAMINOPHEN AND HYDROCODONE BITARTRATE [Concomitant]
     Dosage: 7.5/500 MG
     Route: 048
     Dates: start: 20060103
  6. VERSED [Concomitant]
     Dosage: UNK
  7. IMDUR [Concomitant]
     Dosage: 15 MG, QD
     Route: 048
  8. ISOSORBIDE DINITRATE [Concomitant]
     Dosage: 30 MG, 1/2 TABLET BID
  9. PAVULON [Concomitant]
  10. DOPAMINE HCL [Concomitant]
  11. CEPHALEXIN [Concomitant]
     Dosage: 500 MG, BID
  12. ZINACEF [Concomitant]
  13. FENTANYL [Concomitant]
  14. VASOPRESSIN [Concomitant]
  15. TRASYLOL [Suspect]
     Indication: CORONARY ARTERY BYPASS
     Dosage: INTIAL TEST DOSE, 200ML LOADING DOSE, 50ML/HR
     Route: 042
     Dates: start: 20060110, end: 20060110
  16. LIDOCAINE [Concomitant]
  17. MAGNESIUM SULFATE [Concomitant]
  18. TRASYLOL [Suspect]
     Indication: STERNOTOMY
  19. DIGOXIN [Concomitant]
     Dosage: 0.125 MG, SUNDAY, MONDAY, WEDNESDAY AND FRIDAY
     Route: 048
  20. HEPARIN [Concomitant]
     Dosage: UNK
  21. INSULIN [Concomitant]
  22. KEFUROX [Concomitant]
  23. PROTAMINE [Concomitant]
  24. PROPOFOL [Concomitant]
  25. MIVACRON [Concomitant]

REACTIONS (15)
  - ANXIETY [None]
  - RENAL FAILURE [None]
  - EMOTIONAL DISORDER [None]
  - DEATH [None]
  - FEAR [None]
  - STRESS [None]
  - EMOTIONAL DISTRESS [None]
  - PAIN [None]
  - UNEVALUABLE EVENT [None]
  - ANHEDONIA [None]
  - RENAL INJURY [None]
  - CEREBROVASCULAR ACCIDENT [None]
  - RENAL IMPAIRMENT [None]
  - INJURY [None]
  - MULTI-ORGAN FAILURE [None]
